FAERS Safety Report 23518700 (Version 10)
Quarter: 2025Q1

REPORT INFORMATION
  Report Type: Spontaneous
  Country: US (occurrence: US)
  Receive Date: 20240213
  Receipt Date: 20250303
  Transmission Date: 20250409
  Serious: Yes (Other)
  Sender: PFIZER
  Company Number: US-PFIZER INC-PV202400020631

PATIENT
  Age: 64 Year
  Sex: Female

DRUGS (4)
  1. IBRANCE [Suspect]
     Active Substance: PALBOCICLIB
     Indication: Breast cancer female
  2. IBRANCE [Suspect]
     Active Substance: PALBOCICLIB
     Dosage: 100 MG, 1X/DAY (1 TAB PO (PER ORAL) QD (ONCE A DAY))
     Route: 048
  3. IBRANCE [Suspect]
     Active Substance: PALBOCICLIB
     Route: 048
  4. LETROZOLE [Concomitant]
     Active Substance: LETROZOLE

REACTIONS (6)
  - Diabetes mellitus [Unknown]
  - Asthma [Unknown]
  - Osteoporosis [Unknown]
  - Liver disorder [Unknown]
  - Fatigue [Unknown]
  - Nausea [Unknown]
